FAERS Safety Report 13352300 (Version 1)
Quarter: 2017Q1

REPORT INFORMATION
  Report Type: Spontaneous
  Country: US (occurrence: US)
  Receive Date: 20170320
  Receipt Date: 20170320
  Transmission Date: 20170429
  Serious: No
  Sender: FDA-Public Use
  Company Number: US-SA-2016SA223052

PATIENT
  Age: 52 Year
  Sex: Female

DRUGS (1)
  1. NASACORT ALLERGY 24HR [Suspect]
     Active Substance: TRIAMCINOLONE ACETONIDE
     Indication: MULTIPLE ALLERGIES
     Route: 045
     Dates: end: 20161130

REACTIONS (4)
  - Ear pain [Not Recovered/Not Resolved]
  - Headache [Not Recovered/Not Resolved]
  - Oropharyngeal pain [Not Recovered/Not Resolved]
  - Nasal discomfort [Not Recovered/Not Resolved]
